FAERS Safety Report 14679003 (Version 1)
Quarter: 2018Q1

REPORT INFORMATION
  Report Type: Spontaneous
  Country: JP (occurrence: JP)
  Receive Date: 20180326
  Receipt Date: 20180326
  Transmission Date: 20180509
  Serious: Yes (Other)
  Sender: FDA-Public Use
  Company Number: JP-AMGEN-JPNNI2018041362

PATIENT
  Age: 57 Year
  Sex: Female
  Weight: 69 kg

DRUGS (6)
  1. FASLODEX [Concomitant]
     Active Substance: FULVESTRANT
     Indication: BREAST CANCER
     Dosage: UNK
     Route: 030
     Dates: start: 20131214, end: 20160221
  2. ZOMETA [Suspect]
     Active Substance: ZOLEDRONIC ACID
     Indication: PRODUCT USED FOR UNKNOWN INDICATION
     Dosage: UNK
     Route: 065
  3. FURTULON [Concomitant]
     Active Substance: DOXIFLURIDINE
     Indication: BREAST CANCER
     Dosage: 398 G, TOTAL
     Route: 065
     Dates: start: 20130228, end: 201311
  4. RANMARK [Suspect]
     Active Substance: DENOSUMAB
     Indication: BREAST CANCER
     Dosage: 120 MG, 13 TIMES
     Route: 065
     Dates: start: 20170221
  5. RANMARK [Suspect]
     Active Substance: DENOSUMAB
     Indication: METASTASES TO BONE
     Dosage: 1800 MG, TOTAL
     Route: 065
     Dates: start: 20130228, end: 201503
  6. NAVELBINE [Concomitant]
     Active Substance: VINORELBINE TARTRATE
     Indication: BREAST CANCER
     Dosage: 35 MG/M2, UNK
     Route: 065
     Dates: start: 201302, end: 201602

REACTIONS (1)
  - Osteonecrosis of jaw [Recovered/Resolved]

NARRATIVE: CASE EVENT DATE: 201509
